FAERS Safety Report 4980317-2 (Version None)
Quarter: 2006Q2

REPORT INFORMATION
  Report Type: 
  Country: None (occurrence: None)
  Receive Date: 20060424
  Receipt Date: 20060207
  Transmission Date: 20061013
  Serious: Yes (Death, Hospitalization)
  Sender: FDA-Public Use
  Company Number: PHHO2006JP02369

PATIENT
  Age: 77 Year
  Sex: Male

DRUGS (13)
  1. DIOVAN [Suspect]
     Indication: HYPERTENSION
     Dosage: 80 MG, QD
     Route: 048
     Dates: start: 20021115, end: 20040603
  2. AMARYL [Concomitant]
     Indication: DIABETES MELLITUS
     Dosage: 1 MG, QD
     Route: 048
     Dates: start: 20021115
  3. PREDONINE [Concomitant]
     Dosage: 5 MG, QD
     Route: 048
     Dates: start: 20021115
  4. DEPAKENE [Concomitant]
     Indication: EPILEPSY
     Dosage: 800 MG/DAILY
     Dates: start: 20021115
  5. HALCION [Concomitant]
     Indication: INSOMNIA
     Dosage: 0.125MG/DAILY
     Route: 048
     Dates: start: 20021115
  6. TRIDOCELAN [Concomitant]
     Indication: NEUROPATHY PERIPHERAL
     Dates: start: 20021115
  7. BUP-4 [Concomitant]
     Indication: NEUROGENIC BLADDER
     Dates: start: 20040310
  8. BUFFERIN [Concomitant]
     Indication: BACK PAIN
     Dates: start: 20040310
  9. INFREE [Concomitant]
     Indication: MONARTHRITIS
     Dates: start: 20040407
  10. SELBEX [Concomitant]
     Indication: MONARTHRITIS
  11. FLURBIPROFEN [Concomitant]
     Indication: BACK PAIN
  12. SELTOUCH [Concomitant]
     Indication: MONARTHRITIS
  13. DIART [Concomitant]
     Indication: CARDIAC FAILURE
     Dosage: 60 MG

REACTIONS (9)
  - BRONCHITIS [None]
  - CARDIAC FAILURE [None]
  - CONTUSION [None]
  - FALL [None]
  - FEMUR FRACTURE [None]
  - HYPOTENSION [None]
  - OSTEOARTHRITIS [None]
  - OSTEOSYNTHESIS [None]
  - PNEUMONIA [None]
